FAERS Safety Report 13560304 (Version 2)
Quarter: 2017Q3

REPORT INFORMATION
  Report Type: Spontaneous
  Country: DK (occurrence: DK)
  Receive Date: 20170518
  Receipt Date: 20170705
  Transmission Date: 20171127
  Serious: Yes (Hospitalization, Disabling)
  Sender: FDA-Public Use
  Company Number: DK-TEVA-767296ACC

PATIENT
  Sex: Male

DRUGS (5)
  1. METHOTREXATE. [Suspect]
     Active Substance: METHOTREXATE
     Indication: PSORIASIS
     Dates: start: 2000, end: 20070328
  2. METHOTREXATE. [Suspect]
     Active Substance: METHOTREXATE
     Indication: PSORIASIS
     Route: 065
     Dates: start: 201008, end: 201309
  3. STELARA [Concomitant]
     Active Substance: USTEKINUMAB
     Indication: PSORIASIS
     Route: 065
     Dates: start: 201511
  4. METHOTREXATE. [Suspect]
     Active Substance: METHOTREXATE
     Indication: PSORIASIS
     Dates: start: 201411, end: 201502
  5. ENBREL [Concomitant]
     Active Substance: ETANERCEPT
     Indication: PSORIASIS
     Route: 065
     Dates: start: 200703, end: 201511

REACTIONS (11)
  - Chronic hepatic failure [Not Recovered/Not Resolved]
  - Biliary cirrhosis [Not Recovered/Not Resolved]
  - Ascites [Recovered/Resolved]
  - Liver disorder [Unknown]
  - Splenomegaly [Not Recovered/Not Resolved]
  - Alanine aminotransferase increased [Unknown]
  - Hepatic cirrhosis [Not Recovered/Not Resolved]
  - Varices oesophageal [Not Recovered/Not Resolved]
  - Gamma-glutamyltransferase increased [Unknown]
  - Drug ineffective [Unknown]
  - Serum procollagen type III N-terminal propeptide increased [Unknown]

NARRATIVE: CASE EVENT DATE: 2006
